FAERS Safety Report 4738217-9 (Version None)
Quarter: 2005Q3

REPORT INFORMATION
  Report Type: 
  Country: None (occurrence: None)
  Receive Date: 20050808
  Receipt Date: 20050721
  Transmission Date: 20060218
  Serious: No
  Sender: FDA-Public Use
  Company Number: 2005PV000503

PATIENT
  Age: 70 Year
  Sex: Female

DRUGS (11)
  1. SYMLIN [Suspect]
     Indication: DIABETES MELLITUS INSULIN-DEPENDENT
     Dosage: 60 UG;TID;SC
     Route: 058
     Dates: start: 20050608
  2. LEVOTHYROXINE [Concomitant]
  3. HYZAAR [Concomitant]
  4. EVISTA [Concomitant]
  5. CALCIUM/VITAMIN  D NOS [Concomitant]
  6. FISH OIL [Concomitant]
  7. IBUPROFEN [Concomitant]
  8. TYLENOL (CAPLET) [Concomitant]
  9. GRAPE SEED [Concomitant]
  10. EYECAPS [Concomitant]
  11. NOVOLOG [Concomitant]

REACTIONS (5)
  - CONFUSIONAL STATE [None]
  - DEPRESSED LEVEL OF CONSCIOUSNESS [None]
  - FATIGUE [None]
  - HYPOGLYCAEMIA [None]
  - SOMNOLENCE [None]
